FAERS Safety Report 15967393 (Version 3)
Quarter: 2019Q2

REPORT INFORMATION
  Report Type: Spontaneous
  Country: US (occurrence: US)
  Receive Date: 20190215
  Receipt Date: 20190404
  Transmission Date: 20190711
  Serious: No
  Sender: FDA-Public Use
  Company Number: US-SA-2019SA042012

PATIENT
  Age: 71 Year
  Sex: Female

DRUGS (2)
  1. DUPIXENT [Suspect]
     Active Substance: DUPILUMAB
     Dosage: 300 MG, QOW
     Route: 058
     Dates: start: 201901
  2. DUPIXENT [Suspect]
     Active Substance: DUPILUMAB
     Dosage: 600 MG, 1X
     Route: 058
     Dates: start: 201901, end: 201901

REACTIONS (6)
  - Ocular hyperaemia [Unknown]
  - Unevaluable event [Unknown]
  - Eye discharge [Unknown]
  - Pruritus generalised [Unknown]
  - Eye pruritus [Unknown]
  - Eye pain [Unknown]
